FAERS Safety Report 6834174-X (Version None)
Quarter: 2010Q3

REPORT INFORMATION
  Report Type: 
  Country: None (occurrence: None)
  Receive Date: 20100712
  Receipt Date: 20070413
  Transmission Date: 20110219
  Serious: No
  Sender: FDA-Public Use
  Company Number: US-PFIZER INC-2007030626

PATIENT
  Sex: Female
  Weight: 66.22 kg

DRUGS (6)
  1. CHANTIX [Suspect]
     Indication: SMOKING CESSATION THERAPY
     Route: 048
     Dates: start: 20070406
  2. MULTIVITAMINS AND IRON [Suspect]
  3. LEXAPRO [Concomitant]
  4. PEPCID [Concomitant]
  5. ASPIRIN [Concomitant]
  6. ALBUTEROL [Concomitant]
     Indication: CHRONIC OBSTRUCTIVE PULMONARY DISEASE
     Route: 055

REACTIONS (3)
  - ABNORMAL DREAMS [None]
  - DECREASED APPETITE [None]
  - NAUSEA [None]
